FAERS Safety Report 20123955 (Version 1)
Quarter: 2021Q4

REPORT INFORMATION
  Report Type: Spontaneous
  Country: US (occurrence: US)
  Receive Date: 20211129
  Receipt Date: 20211129
  Transmission Date: 20220303
  Serious: No
  Sender: FDA-Public Use
  Company Number: US-BEH-2021138389

PATIENT
  Sex: Female

DRUGS (1)
  1. HIZENTRA [Suspect]
     Active Substance: HUMAN IMMUNOGLOBULIN G
     Indication: Nervous system disorder
     Dosage: 20 GRAM, QW
     Route: 058
     Dates: start: 20210828

REACTIONS (7)
  - Weight decreased [Unknown]
  - Headache [Unknown]
  - Neck pain [Unknown]
  - Infection [Unknown]
  - No adverse event [Unknown]
  - Off label use [Unknown]
  - Intentional product use issue [Unknown]
